FAERS Safety Report 4958225-2 (Version None)
Quarter: 2006Q1

REPORT INFORMATION
  Report Type: 
  Country: None (occurrence: None)
  Receive Date: 20060330
  Receipt Date: 20060320
  Transmission Date: 20060701
  Serious: Yes (Other)
  Sender: FDA-Public Use
  Company Number: CA-GLAXOSMITHKLINE-A0598860A

PATIENT
  Age: 39 Year
  Sex: Male
  Weight: 100 kg

DRUGS (9)
  1. AVANDIA [Suspect]
     Dosage: 8MGD UNKNOWN
     Route: 048
     Dates: start: 20040101, end: 20060131
  2. GLUCOPHAGE [Concomitant]
     Route: 048
  3. COVERSYL [Concomitant]
     Dosage: 8MG PER DAY
  4. LIPIDIL [Concomitant]
  5. EZETROL [Concomitant]
     Dosage: 10MG PER DAY
  6. CELEXA [Concomitant]
     Dosage: 40MG PER DAY
  7. WELLBUTRIN SR [Concomitant]
     Dosage: 150MG PER DAY
     Route: 048
  8. PREVACID [Concomitant]
     Dosage: 30MG PER DAY
  9. LORAZEPAM [Concomitant]
     Dosage: 1MG AS REQUIRED

REACTIONS (6)
  - ANGIOPATHY [None]
  - CARDIAC FAILURE CONGESTIVE [None]
  - CHEST DISCOMFORT [None]
  - DYSPNOEA [None]
  - PULMONARY HYPERTENSION [None]
  - PULMONARY OEDEMA [None]
